FAERS Safety Report 4836997-5 (Version None)
Quarter: 2005Q4

REPORT INFORMATION
  Report Type: 
  Country: None (occurrence: None)
  Receive Date: 20051121
  Receipt Date: 20051114
  Transmission Date: 20060501
  Serious: Yes (Other)
  Sender: FDA-Public Use
  Company Number: 27993

PATIENT
  Age: 79 Year
  Sex: Male

DRUGS (5)
  1. IMIQUIMOD (IMIQUIMOD) [Suspect]
     Indication: LENTIGO MALIGNA STAGE UNSPECIFIED
     Dosage: (1 UNSPEC., 5 IN 1 WEEK(S) TOPICAL
     Route: 061
     Dates: start: 20050725
  2. ASPIRIN [Concomitant]
  3. ATENOLOL [Concomitant]
  4. RAMIPRIL [Concomitant]
  5. ATORVASTATIN CALCIUM [Concomitant]

REACTIONS (3)
  - HYPOAESTHESIA ORAL [None]
  - PARAESTHESIA [None]
  - SWELLING FACE [None]
